FAERS Safety Report 13815417 (Version 1)
Quarter: 2017Q3

REPORT INFORMATION
  Report Type: Spontaneous
  Country: US (occurrence: US)
  Receive Date: 20170731
  Receipt Date: 20170731
  Transmission Date: 20171127
  Serious: Yes (Hospitalization, Other)
  Sender: FDA-Public Use
  Company Number: US-PFIZER INC-2017328965

PATIENT
  Sex: Female
  Weight: 81.63 kg

DRUGS (6)
  1. JANUVIA [Concomitant]
     Active Substance: SITAGLIPTIN PHOSPHATE
     Dosage: UNK
  2. EYLEA [Suspect]
     Active Substance: AFLIBERCEPT
     Dosage: UNK (EVERY 4 WEEKS, BOTH EYES)
     Route: 047
     Dates: start: 20170320, end: 20170320
  3. PRANDIN [Concomitant]
     Active Substance: REPAGLINIDE
     Dosage: UNK
  4. EYLEA [Suspect]
     Active Substance: AFLIBERCEPT
     Indication: DIABETIC RETINAL OEDEMA
     Dosage: UNK (EVERY 4 WEEKS IN BOTH EYES)
     Route: 047
     Dates: start: 2014, end: 20170424
  5. LIPITOR [Suspect]
     Active Substance: ATORVASTATIN CALCIUM
     Dosage: UNK
     Dates: start: 201703, end: 20170702
  6. EYLEA [Suspect]
     Active Substance: AFLIBERCEPT
     Dosage: UNK (EVERY 4 WEEKS, BOTH EYES, LAST DOSE)
     Route: 047
     Dates: start: 20170424, end: 20170424

REACTIONS (4)
  - Transient ischaemic attack [Unknown]
  - Muscle spasms [Unknown]
  - Cerebrovascular accident [Unknown]
  - Retinal artery occlusion [Unknown]

NARRATIVE: CASE EVENT DATE: 20170322
